FAERS Safety Report 18633821 (Version 1)
Quarter: 2020Q4

REPORT INFORMATION
  Report Type: Spontaneous
  Country: US (occurrence: US)
  Receive Date: 20201217
  Receipt Date: 20201217
  Transmission Date: 20210114
  Serious: Yes (Hospitalization)
  Sender: FDA-Public Use
  Company Number: None

PATIENT
  Age: 61 Year
  Sex: Male

DRUGS (19)
  1. OPSUMIT [Suspect]
     Active Substance: MACITENTAN
     Indication: PULMONARY ARTERIAL HYPERTENSION
     Route: 048
     Dates: start: 201707
  2. PANTOPRAZOLE [Concomitant]
     Active Substance: PANTOPRAZOLE
  3. MOTRIN [Concomitant]
     Active Substance: IBUPROFEN
  4. TESSALON [Concomitant]
     Active Substance: BENZONATATE
  5. CLOTRIMAZOLE TOP CREAM [Concomitant]
  6. PREDNISONE. [Concomitant]
     Active Substance: PREDNISONE
  7. TORSEMIDE. [Concomitant]
     Active Substance: TORSEMIDE
  8. ALVESCO HFA [Concomitant]
  9. INSPRA [Concomitant]
     Active Substance: EPLERENONE
  10. PANTPRAZOLE [Concomitant]
  11. GUAIFENESIN. [Concomitant]
     Active Substance: GUAIFENESIN
  12. FLONASE [Concomitant]
     Active Substance: FLUTICASONE PROPIONATE
  13. SILDENAFIL. [Concomitant]
     Active Substance: SILDENAFIL
  14. TYVASO [Concomitant]
     Active Substance: TREPROSTINIL
  15. ASPIRIN. [Concomitant]
     Active Substance: ASPIRIN
  16. SANTYL TOP OINT [Concomitant]
  17. HYROXYZINE [Concomitant]
  18. ATORVASTATIN [Concomitant]
     Active Substance: ATORVASTATIN
  19. ALVESCO HFA [Concomitant]

REACTIONS (6)
  - Sepsis [None]
  - Hyponatraemia [None]
  - Syncope [None]
  - Troponin increased [None]
  - Pneumonia [None]
  - Liver function test increased [None]

NARRATIVE: CASE EVENT DATE: 20201126
